FAERS Safety Report 11368567 (Version 1)
Quarter: 2015Q3

REPORT INFORMATION
  Report Type: Spontaneous
  Country: BR (occurrence: BR)
  Receive Date: 20150812
  Receipt Date: 20150812
  Transmission Date: 20151125
  Serious: Yes (Other)
  Sender: FDA-Public Use
  Company Number: PHHY2015BR094203

PATIENT
  Age: 41 Year
  Sex: Female

DRUGS (3)
  1. ESTRADIOL ENANTHATE [Suspect]
     Active Substance: ESTRADIOL ENANTHATE
     Indication: PRODUCT USED FOR UNKNOWN INDICATION
     Dosage: 10 MG, QW
     Route: 030
  2. CYPROTERONE ACETATE+ETHINYLESTRADIOL [Suspect]
     Active Substance: CYPROTERONE ACETATE\ETHINYL ESTRADIOL
     Indication: PRODUCT USED FOR UNKNOWN INDICATION
     Route: 048
  3. OESTRADIOL VALERATE [Suspect]
     Active Substance: ESTRADIOL VALERATE
     Indication: PRODUCT USED FOR UNKNOWN INDICATION
     Dosage: 5 MG, QW
     Route: 030

REACTIONS (3)
  - Gynaecomastia [Unknown]
  - Prolactinoma [Unknown]
  - Galactorrhoea [Unknown]
